FAERS Safety Report 6807451-6 (Version None)
Quarter: 2010Q2

REPORT INFORMATION
  Report Type: 
  Country: None (occurrence: None)
  Receive Date: 20100625
  Receipt Date: 20100621
  Transmission Date: 20101027
  Serious: Yes (Hospitalization)
  Sender: FDA-Public Use
  Company Number: DSU-2010-02509

PATIENT
  Age: 75 Year
  Sex: Female
  Weight: 84.369 kg

DRUGS (4)
  1. WELCHOL [Suspect]
     Indication: HYPERCHOLESTEROLAEMIA
     Dosage: 2500 MG (1250 MG, BID), PER ORAL
     Route: 048
     Dates: start: 20080617, end: 20100429
  2. ASPIRIN [Concomitant]
  3. AMLODIPINE [Concomitant]
  4. CALTRATE + D (ERGOCALCIFEROL, CALCIUM CARBONATE) (ERGOCALCIFEROL, CALC [Concomitant]

REACTIONS (1)
  - COLITIS [None]
